FAERS Safety Report 15987868 (Version 2)
Quarter: 2019Q1

REPORT INFORMATION
  Report Type: Spontaneous
  Country: US (occurrence: US)
  Receive Date: 20190220
  Receipt Date: 20190225
  Transmission Date: 20190418
  Serious: No
  Sender: FDA-Public Use
  Company Number: US-PFIZER INC-2018196267

PATIENT
  Age: 70 Year
  Sex: Male

DRUGS (1)
  1. NORVASC [Suspect]
     Active Substance: AMLODIPINE BESYLATE
     Dosage: 10 MG, DAILY
     Dates: start: 2001

REACTIONS (4)
  - Dermatitis [Unknown]
  - Poor quality product administered [Unknown]
  - Drug hypersensitivity [Unknown]
  - Product formulation issue [Unknown]

NARRATIVE: CASE EVENT DATE: 2017
